FAERS Safety Report 21119852 (Version 2)
Quarter: 2022Q4

REPORT INFORMATION
  Report Type: Spontaneous
  Country: US (occurrence: US)
  Receive Date: 20220722
  Receipt Date: 20221004
  Transmission Date: 20230112
  Serious: Yes (Hospitalization)
  Sender: FDA-Public Use
  Company Number: US-NOVOPROD-940060

PATIENT
  Age: 60 Year
  Sex: Female

DRUGS (15)
  1. OZEMPIC [Suspect]
     Active Substance: SEMAGLUTIDE
     Indication: Type 2 diabetes mellitus
     Dosage: 0.5 MG, QW
     Route: 058
     Dates: start: 202202
  2. TRAZODONE [Concomitant]
     Active Substance: TRAZODONE HYDROCHLORIDE
     Indication: Insomnia
     Dosage: 50 MG, QD NIGHTLY
     Route: 048
  3. ROSUVASTATIN [Concomitant]
     Active Substance: ROSUVASTATIN
     Indication: Hyperlipidaemia
     Dosage: 5 MG, QD
     Route: 048
  4. VITAMINS [Concomitant]
     Active Substance: VITAMINS
     Indication: Product used for unknown indication
     Dosage: 1 TABLET BY MOUTH DAILY
     Route: 048
  5. VITAMIN D3 [Concomitant]
     Active Substance: CHOLECALCIFEROL
     Indication: Vitamin D deficiency
     Dosage: 1000 IU, TIW
     Route: 048
  6. CALCIUM [Concomitant]
     Active Substance: CALCIUM
     Indication: Product used for unknown indication
     Dosage: 600 MG, TIW
     Route: 048
  7. ASPIRIN [Concomitant]
     Active Substance: ASPIRIN
     Indication: Product used for unknown indication
     Dosage: 81 MG, TIW
     Route: 048
  8. EPIPEN [Concomitant]
     Active Substance: EPINEPHRINE
     Indication: Product used for unknown indication
     Dosage: UNK UNK, SINGLE
     Route: 030
  9. XANAX [Concomitant]
     Active Substance: ALPRAZOLAM
     Indication: Insomnia
     Dosage: 1 MG, QD NIGHTLY
     Route: 048
  10. CLARITIN [Concomitant]
     Active Substance: LORATADINE
     Indication: Product used for unknown indication
     Dosage: 10 MG, QD
     Route: 048
  11. SINGULAIR [Concomitant]
     Active Substance: MONTELUKAST SODIUM
     Indication: Product used for unknown indication
     Dosage: 10 MG, QD NIGHTLY
     Route: 048
  12. NASACORT [Concomitant]
     Active Substance: TRIAMCINOLONE ACETONIDE
     Indication: Product used for unknown indication
     Dosage: 2 SQUIRTS IN THE NOSTRILS, QD
     Route: 045
  13. DULOXETINE [Concomitant]
     Active Substance: DULOXETINE
     Indication: Major depression
     Dosage: 60 MG, QD
     Route: 048
  14. DULOXETINE [Concomitant]
     Active Substance: DULOXETINE
     Indication: Generalised anxiety disorder
  15. FLUZONE QUADRIVALENT NOS [Concomitant]
     Active Substance: INFLUENZA A VIRUS A/CALIFORNIA/7/2009 X-179A (H1N1) ANTIGEN (FORMALDEHYDE INACTIVATED)\INFLUENZA A V
     Indication: Influenza immunisation
     Dosage: UNK
     Route: 030
     Dates: start: 20210917

REACTIONS (27)
  - Epistaxis [Recovered/Resolved]
  - Sleep apnoea syndrome [Unknown]
  - Migraine [Recovered/Resolved]
  - Headache [Recovered/Resolved]
  - Cough [Recovered/Resolved]
  - Middle ear effusion [Not Recovered/Not Resolved]
  - Epistaxis [Unknown]
  - Anosmia [Unknown]
  - Ageusia [Unknown]
  - Chills [Unknown]
  - Dysphonia [Unknown]
  - Oropharyngeal pain [Unknown]
  - Contusion [Unknown]
  - Fall [Unknown]
  - Back disorder [Unknown]
  - Pain [Unknown]
  - Chronic sinusitis [Recovering/Resolving]
  - Wheezing [Unknown]
  - Feeling abnormal [Unknown]
  - Asthma [Unknown]
  - Corrective lens user [Unknown]
  - Obesity [Unknown]
  - Dizziness [Not Recovered/Not Resolved]
  - Fatigue [Unknown]
  - Weight decreased [Unknown]
  - Blood glucose increased [Recovered/Resolved]
  - Gastrooesophageal reflux disease [Unknown]

NARRATIVE: CASE EVENT DATE: 20220101
